FAERS Safety Report 22009619 (Version 2)
Quarter: 2023Q1

REPORT INFORMATION
  Report Type: Spontaneous
  Country: FR (occurrence: FR)
  Receive Date: 20230220
  Receipt Date: 20230321
  Transmission Date: 20230418
  Serious: Yes (Hospitalization, Other)
  Sender: FDA-Public Use
  Company Number: FR-ROCHE-3227042

PATIENT

DRUGS (9)
  1. VALGANCICLOVIR [Suspect]
     Active Substance: VALGANCICLOVIR
     Indication: Cytomegalovirus viraemia
     Dosage: 900 MG/DAY
     Route: 065
     Dates: start: 20190131, end: 20190731
  2. VALGANCICLOVIR [Suspect]
     Active Substance: VALGANCICLOVIR
     Indication: Antiviral prophylaxis
     Dosage: 900 MILLIGRAM, BID, FOR 3 WEEKS
     Route: 065
     Dates: start: 201912, end: 20200122
  3. VALGANCICLOVIR [Suspect]
     Active Substance: VALGANCICLOVIR
     Dosage: 900 MILLIGRAM/DAY
     Route: 065
     Dates: start: 20200122, end: 202005
  4. VALGANCICLOVIR [Suspect]
     Active Substance: VALGANCICLOVIR
     Dosage: 900 MILLIGRAM, BID, CURATIVE DOSE
     Route: 065
     Dates: start: 202005, end: 2020
  5. GANCICLOVIR [Suspect]
     Active Substance: GANCICLOVIR
     Indication: Cytomegalovirus viraemia
     Dosage: 5 MILLIGRAM/KILOGRAM PER 12 HOUR FOR 2 WEEKS
     Route: 042
     Dates: start: 20191211, end: 201912
  6. TACROLIMUS [Concomitant]
     Active Substance: TACROLIMUS
     Indication: Prophylaxis against transplant rejection
     Dosage: UNK
     Route: 065
     Dates: start: 2019
  7. MYCOPHENOLATE MOFETIL [Concomitant]
     Active Substance: MYCOPHENOLATE MOFETIL
     Indication: Prophylaxis against transplant rejection
     Dosage: UNK
     Route: 065
     Dates: start: 20190131, end: 2020
  8. CYCLOSPORINE [Concomitant]
     Active Substance: CYCLOSPORINE
     Indication: Prophylaxis against transplant rejection
     Dosage: UNK
     Route: 065
     Dates: start: 20190131, end: 20190502
  9. EVEROLIMUS [Concomitant]
     Active Substance: EVEROLIMUS
     Indication: Prophylaxis against transplant rejection
     Dosage: UNK
     Route: 065
     Dates: start: 202005

REACTIONS (6)
  - Cytomegalovirus infection reactivation [Recovered/Resolved]
  - Cytomegalovirus colitis [Unknown]
  - Norovirus infection [Unknown]
  - Drug resistance [Unknown]
  - Neutropenia [Unknown]
  - Renal failure [Unknown]

NARRATIVE: CASE EVENT DATE: 20200101
